FAERS Safety Report 25284398 (Version 1)
Quarter: 2025Q2

REPORT INFORMATION
  Report Type: Spontaneous
  Country: US (occurrence: None)
  Receive Date: 20250508
  Receipt Date: 20250508
  Transmission Date: 20250716
  Serious: Yes (Hospitalization)
  Sender: FDA-CTU
  Company Number: None

PATIENT
  Sex: Male

DRUGS (9)
  1. JAKAFI [Suspect]
     Active Substance: RUXOLITINIB
     Indication: Product used for unknown indication
     Dosage: 10 MG TWICE A DAY ORAL ?
     Route: 048
     Dates: start: 20240415
  2. FLUTICASONE [Concomitant]
     Active Substance: FLUTICASONE
     Dates: start: 20240729
  3. BACTRIM [Concomitant]
     Active Substance: SULFAMETHOXAZOLE\TRIMETHOPRIM
  4. MONTELUKAST [Concomitant]
     Active Substance: MONTELUKAST
  5. brimonidide [Concomitant]
  6. AZITHROMYCIN [Concomitant]
     Active Substance: AZITHROMYCIN
  7. ACYCLOVIR [Concomitant]
     Active Substance: ACYCLOVIR
  8. VITAMIN D [Concomitant]
     Active Substance: VITAMIN D NOS
  9. PREDNISONE [Concomitant]
     Active Substance: PREDNISONE

REACTIONS (1)
  - Hospitalisation [None]
